FAERS Safety Report 6328738-X (Version None)
Quarter: 2009Q3

REPORT INFORMATION
  Report Type: 
  Country: None (occurrence: None)
  Receive Date: 20090826
  Receipt Date: 20090819
  Transmission Date: 20100115
  Serious: Yes (Hospitalization)
  Sender: FDA-Public Use
  Company Number: US-AVENTIS-200917440US

PATIENT
  Sex: Female

DRUGS (3)
  1. TAXOTERE [Suspect]
     Dosage: DOSE: UNK
     Route: 042
  2. CYTOXAN [Suspect]
     Dosage: DOSE: UNK
     Route: 042
  3. HORMONES AND RELATED AGENTS [Concomitant]
     Dosage: DOSE: UNK

REACTIONS (3)
  - DIARRHOEA [None]
  - HAEMATURIA [None]
  - STOMATITIS [None]
